FAERS Safety Report 23149456 (Version 2)
Quarter: 2023Q4

REPORT INFORMATION
  Report Type: Spontaneous
  Country: US (occurrence: US)
  Receive Date: 20231106
  Receipt Date: 20231222
  Transmission Date: 20240110
  Serious: Yes (Other)
  Sender: FDA-Public Use
  Company Number: US-SK LIFE SCIENCE, INC.-SKPVG-2023-001323

PATIENT

DRUGS (10)
  1. XCOPRI [Suspect]
     Active Substance: CENOBAMATE
     Indication: Seizure
     Dosage: UNK
     Route: 048
     Dates: start: 20230228
  2. XCOPRI [Suspect]
     Active Substance: CENOBAMATE
     Dosage: 200 MILLIGRAM
     Route: 048
  3. XCOPRI [Suspect]
     Active Substance: CENOBAMATE
     Dosage: 100 MILLIGRAM
     Route: 048
  4. XCOPRI [Suspect]
     Active Substance: CENOBAMATE
     Dosage: 150 MILLIGRAM, QD
     Route: 048
     Dates: start: 20231016
  5. XCOPRI [Suspect]
     Active Substance: CENOBAMATE
     Dosage: 100 MILLIGRAM, QD
     Route: 048
     Dates: start: 20231016
  6. ONFI [Suspect]
     Active Substance: CLOBAZAM
     Indication: Product used for unknown indication
     Dosage: UNK
     Route: 065
  7. ONFI [Suspect]
     Active Substance: CLOBAZAM
     Dosage: 10 MG, BID, HALF OF THE AMOUNT HE HAD USED
     Route: 065
  8. EPIDIOLEX [Suspect]
     Active Substance: CANNABIDIOL
     Indication: Product used for unknown indication
     Dosage: 100MG,  6.5ML IN THE MORNING, AND 10ML AT NIGHT
     Route: 065
  9. EPIDIOLEX [Suspect]
     Active Substance: CANNABIDIOL
     Dosage: 13 MILLILITER, QD
     Route: 065
  10. LAMICTAL [Concomitant]
     Active Substance: LAMOTRIGINE
     Indication: Product used for unknown indication
     Dosage: 150MG, TAKES FOUR A DAY
     Route: 065

REACTIONS (12)
  - Pilonidal disease [Unknown]
  - Adverse drug reaction [Unknown]
  - Skin haemorrhage [Not Recovered/Not Resolved]
  - Impaired healing [Not Recovered/Not Resolved]
  - Drug intolerance [Unknown]
  - Oxygen saturation decreased [Unknown]
  - Seizure [Recovered/Resolved]
  - Sedation [Unknown]
  - Drug interaction [Unknown]
  - Cognitive disorder [Unknown]
  - Fatigue [Unknown]
  - Hypersomnia [Not Recovered/Not Resolved]
